FAERS Safety Report 23970982 (Version 2)
Quarter: 2024Q2

REPORT INFORMATION
  Report Type: Spontaneous
  Country: JP (occurrence: JP)
  Receive Date: 20240613
  Receipt Date: 20240619
  Transmission Date: 20240716
  Serious: Yes (Hospitalization)
  Sender: FDA-Public Use
  Company Number: JP-ASTELLAS-2024JP003881

PATIENT
  Age: 84 Year
  Sex: Male

DRUGS (4)
  1. PADCEV [Suspect]
     Active Substance: ENFORTUMAB VEDOTIN-EJFV
     Indication: Transitional cell carcinoma
     Dosage: 0.75 MG/KG, UNKNOWN FREQ.
     Route: 065
     Dates: start: 20240508, end: 20240522
  2. GEMCITABINE HYDROCHLORIDE [Concomitant]
     Active Substance: GEMCITABINE HYDROCHLORIDE
     Indication: Product used for unknown indication
     Dosage: UNK UNK, UNKNOWN FREQ.
     Route: 065
  3. CISPLATIN [Concomitant]
     Active Substance: CISPLATIN
     Indication: Product used for unknown indication
     Dosage: UNK UNK, UNKNOWN FREQ.
     Route: 065
  4. CALCIUM GLUCONATE [Concomitant]
     Active Substance: CALCIUM GLUCONATE
     Indication: Blood calcium decreased
     Dosage: UNK UNK, UNKNOWN FREQ.
     Route: 065
     Dates: start: 202406

REACTIONS (6)
  - Hypophosphataemia [Recovering/Resolving]
  - Blood creatine phosphokinase increased [Recovering/Resolving]
  - Gout [Recovering/Resolving]
  - C-reactive protein increased [Recovering/Resolving]
  - Hypoaesthesia [Recovering/Resolving]
  - Blood calcium decreased [Recovering/Resolving]

NARRATIVE: CASE EVENT DATE: 20240522
